FAERS Safety Report 17888458 (Version 1)
Quarter: 2020Q2

REPORT INFORMATION
  Report Type: Spontaneous
  Country: JP (occurrence: JP)
  Receive Date: 20200612
  Receipt Date: 20200612
  Transmission Date: 20200714
  Serious: Yes (Other)
  Sender: FDA-Public Use
  Company Number: JP-ASTRAZENECA-2019SF79000

PATIENT
  Age: 73 Year
  Sex: Female
  Weight: 68 kg

DRUGS (14)
  1. LYNPARZA [Suspect]
     Active Substance: OLAPARIB
     Indication: BREAST CANCER
     Route: 048
     Dates: start: 20190304, end: 20190318
  2. SYMPROIC [Concomitant]
     Active Substance: NALDEMEDINE
     Indication: CONSTIPATION PROPHYLAXIS
     Route: 048
     Dates: start: 20181228
  3. CALONAL [Concomitant]
     Active Substance: ACETAMINOPHEN
     Route: 048
     Dates: start: 20190624
  4. LYNPARZA [Suspect]
     Active Substance: OLAPARIB
     Indication: BREAST CANCER
     Route: 048
     Dates: start: 20190401, end: 20200601
  5. ZETIA [Concomitant]
     Active Substance: EZETIMIBE
     Indication: HYPERLIPIDAEMIA
     Route: 048
  6. TAPENTA [Concomitant]
     Active Substance: TAPENTADOL HYDROCHLORIDE
     Indication: METASTASES TO BONE
     Route: 048
     Dates: start: 20181226
  7. MELOXICAM. [Concomitant]
     Active Substance: MELOXICAM
     Indication: METASTASES TO BONE
     Route: 048
     Dates: start: 20181221, end: 20190121
  8. METOCLOPRAMIDE. [Concomitant]
     Active Substance: METOCLOPRAMIDE
     Indication: NAUSEA
     Dosage: 5 MG AS REQUIRED
     Route: 048
     Dates: start: 20181228
  9. OXINORM [Concomitant]
     Indication: METASTASES TO BONE
     Dosage: 2.5 MG AS REQUIRED
     Route: 048
     Dates: start: 20181225
  10. LYRICA [Concomitant]
     Active Substance: PREGABALIN
     Route: 048
     Dates: start: 20190521, end: 20190624
  11. LYNPARZA [Suspect]
     Active Substance: OLAPARIB
     Indication: BREAST CANCER
     Route: 048
     Dates: start: 20181230, end: 20190129
  12. AVAPRO [Concomitant]
     Active Substance: IRBESARTAN
     Indication: CARDIOTOXICITY
     Route: 048
  13. LYNPARZA [Suspect]
     Active Substance: OLAPARIB
     Indication: BREAST CANCER
     Route: 048
     Dates: start: 20190218, end: 20190303
  14. TAKECAB [Concomitant]
     Active Substance: VONOPRAZAN FUMARATE
     Indication: PEPTIC ULCER
     Route: 048
     Dates: start: 20181210, end: 20190121

REACTIONS (4)
  - Anaemia [Recovered/Resolved]
  - Neutrophil count decreased [Recovered/Resolved]
  - Malignant neoplasm progression [Unknown]
  - Platelet count decreased [Recovered/Resolved]

NARRATIVE: CASE EVENT DATE: 20190121
